FAERS Safety Report 9087539 (Version 2)
Quarter: 2013Q1

REPORT INFORMATION
  Report Type: Spontaneous
  Country: US (occurrence: US)
  Receive Date: 20130131
  Receipt Date: 20130306
  Transmission Date: 20140127
  Serious: Yes (Hospitalization, Other)
  Sender: FDA-Public Use
  Company Number: US-ALEXION-A201300114

PATIENT
  Sex: Female

DRUGS (20)
  1. SOLIRIS 300MG [Suspect]
     Indication: HAEMOLYTIC URAEMIC SYNDROME
     Dosage: UNK
     Route: 042
  2. AMLODIPINE [Concomitant]
     Indication: HYPERTENSION
     Dosage: 5 MG, QD
  3. ASPIRIN [Concomitant]
     Dosage: 81 MG, QD
  4. BELATACEPT [Concomitant]
     Dosage: 5 MG/KG, QMONTH
  5. CALCITRIOL [Concomitant]
     Indication: HYPERPARATHYROIDISM SECONDARY
     Dosage: 0.25 MEQ, QD
  6. DARBEPOETIN ALFA [Concomitant]
     Dosage: 100 MEQ, QW EVERY TUESDAY
  7. DACLIZUMAB [Concomitant]
     Dosage: 1200 MG, Q2W
  8. LOVENOX [Concomitant]
     Dosage: 60 MG, QD FOR 5 DOSES
  9. FERROUS SULFATE [Concomitant]
     Dosage: 325 MG, TID
  10. LASIX [Concomitant]
     Dosage: 40 MG, BID
  11. METOPROLOL TARTRATE [Concomitant]
     Dosage: 75 MG, BID
  12. MIRTAZAPINE [Concomitant]
     Dosage: 15 MG, QD AT BEDTIME
  13. MYFORTIC [Concomitant]
     Dosage: 360 BID
  14. NEXIUM [Concomitant]
     Dosage: 40 MG, QD
  15. PRAVASTATIN [Concomitant]
     Dosage: 80 MG, QD
  16. PREDNISONE [Concomitant]
     Dosage: 5 MG, QD
  17. SILDENAFIL [Concomitant]
     Dosage: 25 MG, TID
  18. SPIRONOLACTONE [Concomitant]
     Dosage: 25 MG, QD
  19. COUMADIN [Concomitant]
     Dosage: 3 MG, QD
  20. CELLCEPT [Concomitant]
     Dosage: UNK

REACTIONS (9)
  - Ascites [Unknown]
  - Pulmonary hypertension [Unknown]
  - Restrictive pulmonary disease [Unknown]
  - Right ventricular failure [Unknown]
  - Hepatomegaly [Unknown]
  - Pleural effusion [Unknown]
  - Hyperparathyroidism secondary [Unknown]
  - Proteinuria [Unknown]
  - Haemoglobin decreased [Unknown]
